FAERS Safety Report 4409701-2 (Version None)
Quarter: 2004Q3

REPORT INFORMATION
  Report Type: 
  Country: None (occurrence: None)
  Receive Date: 20040727
  Receipt Date: 20040727
  Transmission Date: 20050211
  Serious: No
  Sender: FDA-Public Use
  Company Number: None

PATIENT
  Age: 67 Year
  Sex: Male
  Weight: 88.5 kg

DRUGS (2)
  1. DEPO-MEDROL [Suspect]
     Indication: ARTHRITIS
     Dosage: 80 MG ONCE EPIDURAL
     Route: 008
     Dates: start: 20040629, end: 20040629
  2. DEPO-MEDROL [Suspect]
     Indication: BACK PAIN
     Dosage: 80 MG ONCE EPIDURAL
     Route: 008
     Dates: start: 20040629, end: 20040629

REACTIONS (3)
  - FEELING ABNORMAL [None]
  - INFLUENZA LIKE ILLNESS [None]
  - MALAISE [None]
